FAERS Safety Report 7049553-8 (Version None)
Quarter: 2010Q4

REPORT INFORMATION
  Report Type: 
  Country: None (occurrence: None)
  Receive Date: 20101012
  Receipt Date: 20100928
  Transmission Date: 20110411
  Serious: Yes (Hospitalization)
  Sender: FDA-Public Use
  Company Number: 2010090072

PATIENT
  Age: 93 Year
  Sex: Female

DRUGS (7)
  1. EDLUAR [Suspect]
     Indication: INSOMNIA
     Dosage: 10 MG (10 MG, 1 IN 1 D), SUBLINGUAL
     Route: 060
     Dates: start: 20100921, end: 20100921
  2. XANAX [Concomitant]
  3. SYNTHROID [Concomitant]
  4. LEXAPRO [Concomitant]
  5. SIMVASTATIN [Concomitant]
  6. CALOMIST (CYANOCOBALAMIN) [Concomitant]
  7. LISINOPRIL [Concomitant]

REACTIONS (5)
  - FALL [None]
  - PRODUCT TASTE ABNORMAL [None]
  - SYNCOPE [None]
  - WRIST FRACTURE [None]
  - WRONG TECHNIQUE IN DRUG USAGE PROCESS [None]
